FAERS Safety Report 4905409-5 (Version None)
Quarter: 2006Q1

REPORT INFORMATION
  Report Type: 
  Country: None (occurrence: None)
  Receive Date: 20060207
  Receipt Date: 20060207
  Transmission Date: 20060701
  Serious: Yes (Disabling)
  Sender: FDA-Public Use
  Company Number: None

PATIENT
  Age: 82 Year
  Sex: Male
  Weight: 70 kg

DRUGS (1)
  1. IRINOTECAN HCL [Suspect]
     Indication: COLON CANCER METASTATIC
     Dosage: 125 MG-150MG IV DRIP
     Route: 041
     Dates: start: 20050714, end: 20050915

REACTIONS (3)
  - DIARRHOEA [None]
  - DRUG INTOLERANCE [None]
  - RASH [None]
